FAERS Safety Report 21638686 (Version 1)
Quarter: 2022Q4

REPORT INFORMATION
  Report Type: Report from Study
  Country: US (occurrence: US)
  Receive Date: 20221124
  Receipt Date: 20221124
  Transmission Date: 20230113
  Serious: Yes (Other)
  Sender: FDA-Public Use
  Company Number: US-BRISTOL-MYERS SQUIBB COMPANY-2022-111991

PATIENT
  Age: 59 Year
  Sex: Male
  Weight: 75.57 kg

DRUGS (2)
  1. REVLIMID [Suspect]
     Active Substance: LENALIDOMIDE
     Indication: Plasma cell myeloma
     Route: 065
  2. REVLIMID [Suspect]
     Active Substance: LENALIDOMIDE
     Indication: Iron deficiency anaemia
     Dosage: DAILY ON DAYS 1 THROUGH FOLLOWED BY 7 DAYS OFF?FIRST SHIP DATE FROM ACCREDO: 31-AUG-2022
     Route: 048

REACTIONS (2)
  - Fatigue [Unknown]
  - Diverticulitis [Unknown]
